FAERS Safety Report 7824856-5 (Version None)
Quarter: 2011Q4

REPORT INFORMATION
  Report Type: 
  Country: None (occurrence: None)
  Receive Date: 20111019
  Receipt Date: 20110215
  Transmission Date: 20120403
  Serious: No
  Sender: FDA-Public Use
  Company Number: US-BRISTOL-MYERS SQUIBB COMPANY-15551468

PATIENT
  Age: 70 Year
  Sex: Female
  Weight: 77 kg

DRUGS (5)
  1. XALATAN [Concomitant]
  2. LUTEIN [Concomitant]
  3. AVALIDE [Suspect]
     Dosage: 1DF:150/12.5MG
  4. METOPROLOL TARTRATE [Concomitant]
  5. ASPIRIN [Concomitant]
     Dosage: 1DF:HALF OF 325MG

REACTIONS (4)
  - BLOOD PRESSURE INCREASED [None]
  - PALPITATIONS [None]
  - TOOTHACHE [None]
  - BLOOD CALCIUM INCREASED [None]
